FAERS Safety Report 5748296-8 (Version None)
Quarter: 2008Q2

REPORT INFORMATION
  Report Type: 
  Country: None (occurrence: None)
  Receive Date: 20080523
  Receipt Date: 20080513
  Transmission Date: 20081010
  Serious: Yes (Death)
  Sender: FDA-Public Use
  Company Number: US-PFIZER INC-2008016491

PATIENT
  Age: 28 Year
  Sex: Male

DRUGS (6)
  1. ALPRAZOLAM [Suspect]
  2. DIAZEPAM [Suspect]
  3. OXYCODONE HCL [Suspect]
  4. VICODIN [Suspect]
  5. TEMAZEPAM [Suspect]
  6. DOXYLAMINE SUCCINATE [Suspect]

REACTIONS (3)
  - ACCIDENTAL OVERDOSE [None]
  - DRUG ABUSE [None]
  - DRUG TOXICITY [None]
